FAERS Safety Report 18170267 (Version 1)
Quarter: 2020Q3

REPORT INFORMATION
  Report Type: Spontaneous
  Country: DE (occurrence: DE)
  Receive Date: 20200819
  Receipt Date: 20200819
  Transmission Date: 20201103
  Serious: Yes (Other)
  Sender: FDA-Public Use
  Company Number: DE-MYLANLABS-2020M1071220

PATIENT
  Age: 8 Week
  Sex: Male

DRUGS (4)
  1. OBSTINOL [Suspect]
     Active Substance: CALCIUM PANTOTHENATE\DANTHRON
     Indication: PRODUCT USED FOR UNKNOWN INDICATION
     Dosage: UNK, VON DER MUTTER POSTPARTAL EINGENOMMEN
     Route: 063
  2. MACROGOL [Suspect]
     Active Substance: POLYETHYLENE GLYCOLS
     Indication: PRODUCT USED FOR UNKNOWN INDICATION
     Dosage: UNK,VON DER MUTTER POSTPARTAL EINGENOMMEN
     Route: 063
  3. IBUPROFEN. [Suspect]
     Active Substance: IBUPROFEN
     Indication: PRODUCT USED FOR UNKNOWN INDICATION
     Dosage: 400 MILLIGRAM, BID, CA. 3?4 TAGE
     Route: 064
  4. ROTAVIRUS VACCINE [Suspect]
     Active Substance: HUMAN ROTAVIRUS A
     Indication: PRODUCT USED FOR UNKNOWN INDICATION
     Dosage: UNK
     Route: 048

REACTIONS (5)
  - Transaminases increased [Recovered/Resolved]
  - Foetal exposure during pregnancy [Recovered/Resolved]
  - Cholestasis [Unknown]
  - Hypovitaminosis [Unknown]
  - Liver injury [Unknown]

NARRATIVE: CASE EVENT DATE: 2020
